FAERS Safety Report 16720386 (Version 1)
Quarter: 2019Q3

REPORT INFORMATION
  Report Type: Spontaneous
  Country: US (occurrence: US)
  Receive Date: 20190702
  Receipt Date: 20190702
  Transmission Date: 20191005
  Serious: Yes (Other)
  Sender: FDA-Public Use
  Company Number: None

PATIENT
  Age: 38 Year
  Sex: Female
  Weight: 90.9 kg

DRUGS (2)
  1. TRI-LO-MARZIA [Suspect]
     Active Substance: ETHINYL ESTRADIOL\NORGESTIMATE
     Indication: CONTRACEPTION
     Dosage: ?          OTHER DOSE:0.18/0.215/0.25MG;OTHER FREQUENCY: 1 PILL DAILY;?
     Route: 048
     Dates: start: 20190429, end: 20190618
  2. NORGESTIMATE AND ETHINYL ESTRADIOL [Suspect]
     Active Substance: ETHINYL ESTRADIOL\NORGESTIMATE
     Indication: CONTRACEPTION
     Dosage: 1 PILL
     Route: 048
     Dates: start: 20170420

REACTIONS (3)
  - Mood swings [None]
  - Product substitution issue [None]
  - Metrorrhagia [None]

NARRATIVE: CASE EVENT DATE: 20190618
